FAERS Safety Report 9152611 (Version 2)
Quarter: 2017Q2

REPORT INFORMATION
  Report Type: Report from Study
  Country: KR (occurrence: KR)
  Receive Date: 20130308
  Receipt Date: 20170410
  Transmission Date: 20170830
  Serious: Yes (Other)
  Sender: FDA-Public Use
  Company Number: KR-ROCHE-1195524

PATIENT

DRUGS (2)
  1. IRINOTECAN [Suspect]
     Active Substance: IRINOTECAN
     Indication: BREAST CANCER METASTATIC
     Dosage: ON DAYS 1 AND 8
     Route: 042
  2. CAPECITABINE. [Suspect]
     Active Substance: CAPECITABINE
     Indication: BREAST CANCER METASTATIC
     Dosage: ON DAYS 1 TO 14 OF 21 DAY CYCLES.
     Route: 048

REACTIONS (17)
  - Neutropenia [Unknown]
  - Fatigue [Unknown]
  - Febrile neutropenia [Unknown]
  - Palmar-plantar erythrodysaesthesia syndrome [Unknown]
  - Nausea [Unknown]
  - Blood alkaline phosphatase [Unknown]
  - Myalgia [Unknown]
  - Thrombocytopenia [Unknown]
  - Asthenia [Unknown]
  - Stomatitis [Unknown]
  - Blood bilirubin [Unknown]
  - Decreased appetite [Unknown]
  - Dyspnoea [Unknown]
  - Vomiting [Unknown]
  - Abdominal pain [Unknown]
  - Diarrhoea [Unknown]
  - Aspartate aminotransferase [Unknown]
